APPROVED DRUG PRODUCT: METHYLPHENIDATE HYDROCHLORIDE
Active Ingredient: METHYLPHENIDATE HYDROCHLORIDE
Strength: 60MG
Dosage Form/Route: CAPSULE, EXTENDED RELEASE;ORAL
Application: A078458 | Product #004 | TE Code: AB1
Applicant: DR REDDYS LABORATORIES SA
Approved: Jun 23, 2016 | RLD: No | RS: Yes | Type: RX